FAERS Safety Report 8609823-6 (Version None)
Quarter: 2012Q3

REPORT INFORMATION
  Report Type: 
  Country: None (occurrence: None)
  Receive Date: 20120821
  Receipt Date: 20120612
  Transmission Date: 20120928
  Serious: Yes (Congenital Anomaly)
  Sender: FDA-Public Use
  Company Number: AU-009507513-1203USA01101B1

PATIENT

DRUGS (2)
  1. ISENTRESS [Suspect]
     Route: 064
  2. COMBIVIR [Suspect]
     Route: 064

REACTIONS (2)
  - FOETAL EXPOSURE DURING PREGNANCY [None]
  - PLAGIOCEPHALY [None]
